FAERS Safety Report 4588863-0 (Version None)
Quarter: 2005Q1

REPORT INFORMATION
  Report Type: 
  Country: None (occurrence: None)
  Receive Date: 20050222
  Receipt Date: 20050210
  Transmission Date: 20050727
  Serious: Yes (Hospitalization)
  Sender: FDA-Public Use
  Company Number: FR-GLAXOSMITHKLINE-B0371365A

PATIENT
  Age: 37 Year
  Sex: Female
  Weight: 59 kg

DRUGS (4)
  1. AUGMENTIN '125' [Suspect]
     Indication: PHARYNGOLARYNGEAL PAIN
     Dosage: 1G TWICE PER DAY
     Route: 048
     Dates: start: 20041230, end: 20050108
  2. ADVIL [Suspect]
     Indication: PHARYNGOLARYNGEAL PAIN
     Dosage: 400MG THREE TIMES PER DAY
     Route: 048
     Dates: start: 20041230, end: 20050108
  3. EUPANTOL [Suspect]
     Indication: ABDOMINAL PAIN UPPER
     Dosage: 20MG PER DAY
     Route: 048
     Dates: start: 20041213, end: 20050111
  4. OROKEN [Suspect]
     Indication: PHARYNGOLARYNGEAL PAIN
     Dosage: 200MG TWICE PER DAY
     Route: 048
     Dates: start: 20041213, end: 20041222

REACTIONS (4)
  - ECZEMA [None]
  - PRURITUS [None]
  - PURULENCE [None]
  - SKIN FISSURES [None]
